FAERS Safety Report 10570462 (Version 5)
Quarter: 2020Q2

REPORT INFORMATION
  Report Type: Spontaneous
  Country: US (occurrence: US)
  Receive Date: 20141107
  Receipt Date: 20200609
  Transmission Date: 20200713
  Serious: Yes (Death, Hospitalization)
  Sender: FDA-Public Use
  Company Number: US-JNJFOC-20141101221

PATIENT
  Age: 80 Year
  Sex: Female

DRUGS (26)
  1. HYDROCODONE AND ACETAMINOPHEN [Concomitant]
     Active Substance: ACETAMINOPHEN\HYDROCODONE
     Dosage: 5/325 MG Q6MO PRN
     Route: 048
  2. GEODON [Concomitant]
     Active Substance: ZIPRASIDONE HYDROCHLORIDE\ZIPRASIDONE MESYLATE
     Indication: ANXIETY
  3. LASIX [Concomitant]
     Active Substance: FUROSEMIDE
     Indication: PRODUCT USED FOR UNKNOWN INDICATION
     Route: 065
  4. GUAIFENESIN AND DEXTROMETHORPHAN [Concomitant]
     Active Substance: DEXTROMETHORPHAN\GUAIFENESIN
     Indication: DYSPHAGIA
     Dosage: 20-400 MG
     Route: 048
     Dates: start: 20140505
  5. CALCIUM AND VITAMIN D3 [Concomitant]
     Active Substance: CALCIUM\CHOLECALCIFEROL
     Indication: OSTEOARTHRITIS
     Dosage: 600 MG CALCIUM 500 UNIT
     Route: 048
     Dates: start: 20140505
  6. PANTOPRAZOLE SODIUM. [Concomitant]
     Active Substance: PANTOPRAZOLE SODIUM
     Indication: GASTROOESOPHAGEAL REFLUX DISEASE
     Route: 048
     Dates: start: 20140505
  7. NOVOLIN N [Concomitant]
     Active Substance: INSULIN HUMAN
     Dosage: 100 UNIT/ML, 5 UNITS, HOUR OF SLEEP
     Route: 058
     Dates: start: 20140829
  8. NOVOLIN R [Concomitant]
     Active Substance: INSULIN HUMAN
     Indication: PRODUCT USED FOR UNKNOWN INDICATION
     Dosage: 7 UNITS DAILY, 7 UNITS AT NIGHT, 30 UNITS AT?BEDTIME, 10 UNITS IN THE MORNING.
     Route: 065
  9. XARELTO [Suspect]
     Active Substance: RIVAROXABAN
     Indication: DEEP VEIN THROMBOSIS
     Route: 048
     Dates: start: 20140912, end: 20140930
  10. LIDODERM [Concomitant]
     Active Substance: LIDOCAINE
     Indication: NECK PAIN
     Dosage: 5% (700 MG/PATCH)
     Route: 061
     Dates: start: 20140505
  11. LEVOTHYROXINE SODIUM. [Concomitant]
     Active Substance: LEVOTHYROXINE SODIUM
     Indication: HYPOTHYROIDISM
     Route: 048
     Dates: start: 20140505
  12. ENTACAPONE. [Concomitant]
     Active Substance: ENTACAPONE
     Indication: PARKINSONISM
     Route: 048
     Dates: start: 20140505
  13. GLUCERNA [Concomitant]
     Active Substance: AMINO ACIDS\DEXTROSE\ELECTROLYTES NOS\SOYBEAN OIL\VITAMINS
     Indication: ABNORMAL LOSS OF WEIGHT
     Route: 048
     Dates: start: 20140809
  14. BENECALORIE [Concomitant]
     Dosage: 7.5 KCAL/ML
     Route: 048
     Dates: start: 20140829
  15. LANTUS [Concomitant]
     Active Substance: INSULIN GLARGINE
     Dosage: 100 UNIT/ML, 25 UNITS, HOUR OF SLEEP
     Route: 058
     Dates: start: 20140829
  16. MULTIVITAMINS [Concomitant]
     Active Substance: VITAMINS
     Indication: PRODUCT USED FOR UNKNOWN INDICATION
     Route: 065
  17. NORCO [Concomitant]
     Active Substance: ACETAMINOPHEN\HYDROCODONE BITARTRATE
     Indication: NECK PAIN
     Dosage: 5-325 MG AS NEEDED
     Route: 048
     Dates: start: 20140505
  18. CARBIDOPA-LEVODOPA [Concomitant]
     Active Substance: CARBIDOPA\LEVODOPA
     Indication: PARKINSONISM
     Dosage: 25-100 MG
     Route: 048
     Dates: start: 20140505
  19. LORAZEPAM. [Concomitant]
     Active Substance: LORAZEPAM
     Indication: ANXIETY
     Dosage: HOUR OF SLEEP
     Route: 048
     Dates: start: 20140515
  20. GEODON [Concomitant]
     Active Substance: ZIPRASIDONE HYDROCHLORIDE\ZIPRASIDONE MESYLATE
     Indication: BIPOLAR DISORDER
     Dosage: HOUR OF SLEEP
     Route: 048
     Dates: start: 20140829
  21. LEVOTHYROXINE. [Concomitant]
     Active Substance: LEVOTHYROXINE
     Indication: PRODUCT USED FOR UNKNOWN INDICATION
     Route: 065
  22. DRONABINOL. [Concomitant]
     Active Substance: DRONABINOL
     Indication: ABNORMAL LOSS OF WEIGHT
     Route: 048
     Dates: start: 20140505
  23. REMERON [Concomitant]
     Active Substance: MIRTAZAPINE
     Indication: BIPOLAR DISORDER
     Dosage: HALF, HOUR OF SLEEP
     Route: 048
     Dates: start: 20140505
  24. SIMVASTATIN. [Concomitant]
     Active Substance: SIMVASTATIN
     Indication: HYPERLIPIDAEMIA
     Dosage: HOUR OF SLEEP
     Route: 048
     Dates: start: 20140505
  25. GEODON [Concomitant]
     Active Substance: ZIPRASIDONE HYDROCHLORIDE\ZIPRASIDONE MESYLATE
     Indication: SCHIZOAFFECTIVE DISORDER
     Dosage: 100 UNIT/ML, 5 UNITS, HOUR OF SLEEP
     Route: 048
     Dates: start: 20140829
  26. MILK OF MAGNESIA [Concomitant]
     Active Substance: MAGNESIUM HYDROXIDE
     Indication: CONSTIPATION
     Dosage: 400 MG/5 ML AS NEEDED
     Route: 048
     Dates: start: 20140817

REACTIONS (3)
  - Hypotension [Unknown]
  - Rectal haemorrhage [Unknown]
  - Gastrointestinal haemorrhage [Fatal]

NARRATIVE: CASE EVENT DATE: 20140930
